FAERS Safety Report 5343972-3 (Version None)
Quarter: 2007Q2

REPORT INFORMATION
  Report Type: 
  Country: None (occurrence: None)
  Receive Date: 20070531
  Receipt Date: 20070531
  Transmission Date: 20071010
  Serious: Yes (Life-Threatening, Hospitalization, Other)
  Sender: FDA-Public Use
  Company Number: None

PATIENT
  Age: 5 Day
  Sex: Female
  Weight: 1.4969 kg

DRUGS (1)
  1. CAFFEINE CITRATE [Suspect]
     Indication: CARDIAC REHABILITATION THERAPY

REACTIONS (4)
  - DRUG ADMINISTRATION ERROR [None]
  - MYOCARDIAL INFARCTION [None]
  - PHARMACEUTICAL PRODUCT COMPLAINT [None]
  - RESPIRATORY FAILURE [None]
